FAERS Safety Report 9512382 (Version 1)
Quarter: 2013Q3

REPORT INFORMATION
  Report Type: Spontaneous
  Country: DE (occurrence: DE)
  Receive Date: 20130910
  Receipt Date: 20130910
  Transmission Date: 20140515
  Serious: Yes (Other)
  Sender: FDA-Public Use
  Company Number: DE-TEVA-430651USA

PATIENT
  Age: 69 Year
  Sex: Female

DRUGS (1)
  1. LEVACT [Suspect]
     Indication: CHRONIC LYMPHOCYTIC LEUKAEMIA

REACTIONS (3)
  - Pancytopenia [Unknown]
  - Weight decreased [Unknown]
  - Fatigue [Unknown]
